FAERS Safety Report 4916667-5 (Version None)
Quarter: 2006Q1

REPORT INFORMATION
  Report Type: 
  Country: None (occurrence: None)
  Receive Date: 20060216
  Receipt Date: 20060216
  Transmission Date: 20060701
  Serious: Yes (Other)
  Sender: FDA-Public Use
  Company Number: None

PATIENT
  Age: 52 Year
  Sex: Male
  Weight: 74.8 kg

DRUGS (1)
  1. BACLOFEN [Suspect]
     Dosage: 10 MG TID STARTED ON 10/7/05

REACTIONS (3)
  - CONFUSIONAL STATE [None]
  - DELIRIUM [None]
  - SKIN LACERATION [None]
